FAERS Safety Report 24393562 (Version 3)
Quarter: 2024Q4

REPORT INFORMATION
  Report Type: Spontaneous
  Country: GB (occurrence: GB)
  Receive Date: 20241003
  Receipt Date: 20241111
  Transmission Date: 20250115
  Serious: Yes (Death, Hospitalization, Other)
  Sender: MYLAN
  Company Number: GB-MYLANLABS-2024M1090106

PATIENT
  Age: 83 Year
  Sex: Male

DRUGS (8)
  1. CLOZARIL [Suspect]
     Active Substance: CLOZAPINE
     Indication: Parkinson^s disease psychosis
     Dosage: 12.5 MILLIGRAM, PM
     Route: 048
     Dates: start: 20210809, end: 202409
  2. SERTRALINE [Concomitant]
     Active Substance: SERTRALINE HYDROCHLORIDE
     Indication: Depressed mood
     Dosage: 2 DOSAGE FORM, QD (DAILY)
     Route: 065
  3. SERTRALINE [Concomitant]
     Active Substance: SERTRALINE HYDROCHLORIDE
     Indication: Anxiety
  4. MEMANTINE [Concomitant]
     Active Substance: MEMANTINE
     Indication: Agitation
     Dosage: 10 MILLIGRAM, QD (OD)
     Route: 065
  5. SENNA [Concomitant]
     Active Substance: SENNA LEAF\SENNOSIDES\SENNOSIDES A AND B
     Indication: Constipation
     Dosage: 2 DOSAGE FORM, PM (AT NIGHT)
     Route: 065
  6. HYPROMELLOSES [Concomitant]
     Active Substance: HYPROMELLOSES
     Indication: Dry eye
     Dosage: UNK, PRN
     Route: 065
  7. ACETAMINOPHEN [Concomitant]
     Active Substance: ACETAMINOPHEN
     Indication: Pain
     Dosage: 1 DOSAGE FORM (ONE TO BE TAKEN 4-6 HOURLY/PRN)
     Route: 065
  8. PREGABALIN [Concomitant]
     Active Substance: PREGABALIN
     Indication: Anxiety
     Dosage: 1 DOSAGE FORM, PRN (ONE DAILY PRN)
     Route: 065

REACTIONS (17)
  - Parkinson^s disease [Fatal]
  - Dementia [Fatal]
  - Infection [Fatal]
  - Pneumonia [Fatal]
  - Atrial fibrillation [Fatal]
  - Delirium [Unknown]
  - Urinary tract infection [Unknown]
  - General physical health deterioration [Unknown]
  - Hypernatraemia [Unknown]
  - Inflammatory marker increased [Unknown]
  - Malaise [Unknown]
  - Confusional state [Not Recovered/Not Resolved]
  - Pyrexia [Unknown]
  - White blood cell count increased [Unknown]
  - Neutrophil count increased [Unknown]
  - Somnolence [Unknown]
  - Dysphagia [Unknown]

NARRATIVE: CASE EVENT DATE: 20240820
